FAERS Safety Report 14411368 (Version 1)
Quarter: 2018Q1

REPORT INFORMATION
  Report Type: Spontaneous
  Country: US (occurrence: US)
  Receive Date: 20180117
  Receipt Date: 20180117
  Transmission Date: 20180509
  Serious: No
  Sender: FDA-Public Use
  Company Number: None

PATIENT
  Age: 72 Year
  Sex: Female

DRUGS (1)
  1. APIXABAN [Suspect]
     Active Substance: APIXABAN
     Indication: ATRIAL FIBRILLATION
     Route: 048
     Dates: start: 20160525, end: 20170828

REACTIONS (8)
  - Traumatic haematoma [None]
  - Fall [None]
  - Haemorrhage [None]
  - Ataxia [None]
  - Anaemia [None]
  - Tremor [None]
  - Acute kidney injury [None]
  - Muscle twitching [None]

NARRATIVE: CASE EVENT DATE: 20170706
